FAERS Safety Report 6666855-5 (Version None)
Quarter: 2010Q2

REPORT INFORMATION
  Report Type: 
  Country: None (occurrence: None)
  Receive Date: 20100405
  Receipt Date: 20100323
  Transmission Date: 20101027
  Serious: Yes (Death)
  Sender: FDA-Public Use
  Company Number: JP-JNJFOC-20100308694

PATIENT
  Age: 36 Year
  Sex: Female

DRUGS (8)
  1. LEVOFLOXACIN [Suspect]
     Indication: PYREXIA
     Route: 048
  2. LEVOFLOXACIN [Suspect]
     Indication: NASOPHARYNGITIS
     Route: 048
  3. TEPRENONE [Suspect]
     Indication: PYREXIA
     Route: 048
  4. TEPRENONE [Suspect]
     Indication: NASOPHARYNGITIS
     Route: 048
  5. CARBOCISTEINE [Suspect]
     Indication: PYREXIA
     Route: 048
  6. CARBOCISTEINE [Suspect]
     Indication: NASOPHARYNGITIS
     Route: 048
  7. DICLOFENAC [Suspect]
     Indication: PYREXIA
     Route: 048
  8. DICLOFENAC [Suspect]
     Indication: NASOPHARYNGITIS
     Route: 048

REACTIONS (2)
  - LIVER DISORDER [None]
  - TOXIC EPIDERMAL NECROLYSIS [None]
